FAERS Safety Report 9592433 (Version 1)
Quarter: 2013Q3

REPORT INFORMATION
  Report Type: Spontaneous
  Country: DE (occurrence: None)
  Receive Date: 20130920
  Receipt Date: 20130920
  Transmission Date: 20140515
  Serious: Yes (Life-Threatening, Hospitalization)
  Sender: FDA-Public Use
  Company Number: E2B_00000556

PATIENT
  Age: 76 Year
  Sex: Male
  Weight: 90 kg

DRUGS (4)
  1. MIRTAZAPINE [Suspect]
     Indication: DEPRESSION
     Route: 048
     Dates: start: 2004, end: 20120810
  2. CEFUROXIME SODIUM [Suspect]
     Indication: PRODUCT USED FOR UNKNOWN INDICATION
     Dosage: A TOTAL OF 40 TABLETS TAKEN (UNK, UNK), ORAL
     Route: 048
  3. IBUPROFEN [Suspect]
     Indication: ARTHRALGIA
     Route: 048
  4. PHENPROCOUMON (MARCUMAR) [Concomitant]

REACTIONS (1)
  - Bone marrow failure [None]
